FAERS Safety Report 24360768 (Version 2)
Quarter: 2025Q2

REPORT INFORMATION
  Report Type: Spontaneous
  Country: JP (occurrence: JP)
  Receive Date: 20240925
  Receipt Date: 20250612
  Transmission Date: 20250717
  Serious: Yes (Death, Hospitalization, Disabling)
  Sender: ABBVIE
  Company Number: JP-ABBVIE-5936460

PATIENT
  Age: 78 Year
  Sex: Female
  Weight: 42 kg

DRUGS (1)
  1. RINVOQ [Suspect]
     Active Substance: UPADACITINIB
     Indication: Rheumatoid arthritis
     Dosage: FORM STRENGTH: 7.5MG
     Route: 048
     Dates: start: 20240124

REACTIONS (20)
  - Colon cancer [Fatal]
  - Intestinal dilatation [Unknown]
  - Pancreatic enlargement [Unknown]
  - Ascites [Unknown]
  - Malabsorption [Unknown]
  - Metastases to peritoneum [Unknown]
  - Gastric dilatation [Unknown]
  - Gastrointestinal wall thickening [Unknown]
  - Fat tissue increased [Unknown]
  - Gastrointestinal wall thickening [Unknown]
  - Hypophagia [Unknown]
  - Fat tissue increased [Unknown]
  - Pancreatic duct dilatation [Unknown]
  - Nausea [Unknown]
  - Vomiting [Unknown]
  - Malignant ascites [Unknown]
  - Biliary dilatation [Unknown]
  - Mesenteric thickening [Unknown]
  - Bladder mass [Unknown]
  - Pleural effusion [Unknown]

NARRATIVE: CASE EVENT DATE: 20240821
